FAERS Safety Report 4673088-0 (Version None)
Quarter: 2005Q2

REPORT INFORMATION
  Report Type: 
  Country: None (occurrence: None)
  Receive Date: 20050524
  Receipt Date: 20050524
  Transmission Date: 20051028
  Serious: Yes (Life-Threatening)
  Sender: FDA-Public Use
  Company Number: None

PATIENT
  Age: 69 Year
  Sex: Female
  Weight: 77.5 kg

DRUGS (16)
  1. OMNICEF [Suspect]
     Indication: PNEUMONIA
     Dosage: 300MG  BID ORAL
     Route: 048
     Dates: start: 20050328, end: 20050328
  2. WARFARIN [Suspect]
  3. TYLENOL (CAPLET) [Concomitant]
  4. RESTORIL [Concomitant]
  5. MAAWLOX [Concomitant]
  6. MILK OF MAGNESIA TAB [Concomitant]
  7. PHENERGAN [Concomitant]
  8. DIGOXIN [Concomitant]
  9. CALCIUM GLUCONATE [Concomitant]
  10. ZOCOR [Concomitant]
  11. LEXAPRO [Concomitant]
  12. TOPROL-XL [Concomitant]
  13. XANAX [Concomitant]
  14. ZOCOR [Concomitant]
  15. CELEBREX [Concomitant]
  16. ASPIRIN [Concomitant]

REACTIONS (2)
  - HAEMORRHAGE [None]
  - RETROPERITONEAL HAEMORRHAGE [None]
